FAERS Safety Report 6263833-5 (Version None)
Quarter: 2009Q3

REPORT INFORMATION
  Report Type: 
  Country: None (occurrence: None)
  Receive Date: 20090710
  Receipt Date: 20090708
  Transmission Date: 20100115
  Serious: Yes (Other)
  Sender: FDA-Public Use
  Company Number: CA-ASTRAZENECA-2009UW16151

PATIENT
  Age: 34 Year
  Sex: Female

DRUGS (5)
  1. SYMBICORT [Suspect]
     Indication: ASTHMA
     Dosage: 2 PUFFS
     Route: 055
  2. SYMBICORT [Suspect]
     Dosage: 2 PUFFS
     Route: 055
  3. CALCIUM [Concomitant]
  4. VENTOLIN [Concomitant]
     Indication: ASTHMA
  5. FLOVENT [Concomitant]
     Indication: ASTHMA

REACTIONS (7)
  - DRY THROAT [None]
  - DYSPNOEA [None]
  - HEART RATE INCREASED [None]
  - PHARYNGEAL ERYTHEMA [None]
  - ROAD TRAFFIC ACCIDENT [None]
  - TONGUE DISCOLOURATION [None]
  - TREMOR [None]
